FAERS Safety Report 10182390 (Version 1)
Quarter: 2014Q2

REPORT INFORMATION
  Report Type: Report from Study
  Country: CA (occurrence: CA)
  Receive Date: 20140520
  Receipt Date: 20140520
  Transmission Date: 20141212
  Serious: Yes (Other)
  Sender: FDA-Public Use
  Company Number: CA-ROCHE-1402395

PATIENT
  Sex: Male

DRUGS (10)
  1. XELODA [Suspect]
     Indication: GASTROOESOPHAGEAL CANCER
     Dosage: DAILY
     Route: 048
     Dates: start: 2012
  2. INDAPAMIDE [Suspect]
     Indication: PRODUCT USED FOR UNKNOWN INDICATION
     Route: 065
  3. METFORMIN [Concomitant]
     Route: 065
  4. NPH INSULIN [Concomitant]
  5. NOVOMIX [Concomitant]
  6. NOVORAPID [Concomitant]
  7. COMBIGAN [Concomitant]
  8. COVERSYL [Concomitant]
  9. TERAZOSIN [Concomitant]
  10. PANTOPRAZOLE [Concomitant]

REACTIONS (2)
  - Idiopathic pulmonary fibrosis [Not Recovered/Not Resolved]
  - Off label use [Unknown]
